FAERS Safety Report 10340309 (Version 1)
Quarter: 2014Q3

REPORT INFORMATION
  Report Type: Spontaneous
  Country: US (occurrence: US)
  Receive Date: 20140724
  Receipt Date: 20140724
  Transmission Date: 20150326
  Serious: No
  Sender: FDA-Public Use
  Company Number: US-009507513-1407USA010804

PATIENT
  Age: 58 Year
  Sex: Male

DRUGS (1)
  1. TEMODAR [Suspect]
     Active Substance: TEMOZOLOMIDE
     Indication: CHEMOTHERAPY
     Dosage: 1 CAPSULE WITH TWO 5 MG CAPSULES FOR A TOTAL OF 150MG
     Route: 048

REACTIONS (1)
  - Inappropriate schedule of drug administration [Unknown]
